FAERS Safety Report 14481955 (Version 1)
Quarter: 2018Q1

REPORT INFORMATION
  Report Type: Spontaneous
  Country: DE (occurrence: DE)
  Receive Date: 20180202
  Receipt Date: 20180202
  Transmission Date: 20180509
  Serious: Yes (Other)
  Sender: FDA-Public Use
  Company Number: DE-GEHC-2018CSU000404

PATIENT

DRUGS (1)
  1. VISIPAQUE [Suspect]
     Active Substance: IODIXANOL
     Indication: INVESTIGATION ABNORMAL
     Dosage: 50 ML, SINGLE
     Route: 042
     Dates: start: 20180111, end: 20180111

REACTIONS (5)
  - Paraesthesia [Unknown]
  - Heart rate decreased [Unknown]
  - Swelling face [Not Recovered/Not Resolved]
  - Loss of consciousness [Unknown]
  - Pruritus generalised [Not Recovered/Not Resolved]

NARRATIVE: CASE EVENT DATE: 20180111
